FAERS Safety Report 9936756 (Version 1)
Quarter: 2014Q1

REPORT INFORMATION
  Report Type: Spontaneous
  Country: US (occurrence: None)
  Receive Date: 20140107
  Receipt Date: 20140107
  Transmission Date: 20141002
  Serious: Yes (Hospitalization, Other)
  Sender: FDA-Public Use
  Company Number: 2012AP002234

PATIENT
  Age: 59 Year
  Sex: Male

DRUGS (13)
  1. USA LEVOFLOXACIN FCT [Suspect]
     Indication: OTITIS MEDIA
  2. USA LEVOFLOXACIN FCT [Suspect]
     Indication: EXTERNAL EAR CELLULITIS
  3. SIMVASTATIN [Suspect]
     Indication: PRODUCT USED FOR UNKNOWN INDICATION
  4. METHYLPREDNISOLONE [Suspect]
  5. LISINOPRIL [Concomitant]
  6. HYDROCHLOORTHIAZIDE [Concomitant]
  7. AMOXI-CLAVULANICO [Concomitant]
  8. AMOXI-CLAVULANICO [Concomitant]
  9. CEFDINIR [Concomitant]
  10. CEFDINIR [Concomitant]
  11. OXYCODONE [Concomitant]
  12. ACETAMINOPHEN [Concomitant]
  13. IBUPROFEN [Concomitant]

REACTIONS (2)
  - Tendon disorder [None]
  - Drug interaction [None]
